FAERS Safety Report 13206271 (Version 1)
Quarter: 2017Q1

REPORT INFORMATION
  Report Type: Spontaneous
  Country: US (occurrence: US)
  Receive Date: 20170209
  Receipt Date: 20170209
  Transmission Date: 20170428
  Serious: No
  Sender: FDA-Public Use
  Company Number: US-SA-2017SA013769

PATIENT
  Age: 67 Year
  Sex: Female

DRUGS (4)
  1. ALIROCUMAB PREFILLED SYRINGE [Concomitant]
     Dates: start: 2016
  2. PRALUENT [Suspect]
     Active Substance: ALIROCUMAB
     Route: 065
     Dates: start: 2016
  3. ORENCIA [Concomitant]
     Active Substance: ABATACEPT
  4. METHOTREXATE. [Concomitant]
     Active Substance: METHOTREXATE

REACTIONS (8)
  - Upper respiratory tract infection [Recovered/Resolved]
  - Blood triglycerides increased [Unknown]
  - Pyrexia [Unknown]
  - Cough [Not Recovered/Not Resolved]
  - Bronchitis [Recovered/Resolved]
  - Sinus disorder [Not Recovered/Not Resolved]
  - Product supply issue [Unknown]
  - Productive cough [Recovered/Resolved]

NARRATIVE: CASE EVENT DATE: 2016
